FAERS Safety Report 7109592-5 (Version None)
Quarter: 2010Q4

REPORT INFORMATION
  Report Type: 
  Country: None (occurrence: None)
  Receive Date: 20101118
  Receipt Date: 20101112
  Transmission Date: 20110411
  Serious: No
  Sender: FDA-Public Use
  Company Number: US-BIOGENIDEC-2010BI039785

PATIENT
  Sex: Female

DRUGS (2)
  1. AVONEX [Suspect]
     Indication: MULTIPLE SCLEROSIS
     Route: 030
     Dates: start: 20091001, end: 20101105
  2. BACLOFEN [Concomitant]
     Indication: DYSKINESIA

REACTIONS (9)
  - ARTHRALGIA [None]
  - BACK PAIN [None]
  - BLEPHAROSPASM [None]
  - DYSKINESIA [None]
  - GAIT DISTURBANCE [None]
  - MOBILITY DECREASED [None]
  - MULTIPLE SCLEROSIS [None]
  - MUSCULOSKELETAL DISORDER [None]
  - PAIN [None]
